FAERS Safety Report 21012101 (Version 1)
Quarter: 2022Q3

REPORT INFORMATION
  Report Type: Report from Study
  Country: AU (occurrence: AU)
  Receive Date: 20220627
  Receipt Date: 20220627
  Transmission Date: 20221027
  Serious: Yes (Hospitalization, Other)
  Sender: FDA-Public Use
  Company Number: AU-NOVARTISPH-NVSC2020AU011624

PATIENT
  Age: 11 Year
  Sex: Male

DRUGS (3)
  1. KYMRIAH [Suspect]
     Active Substance: TISAGENLECLEUCEL
     Indication: B-cell type acute leukaemia
     Dosage: UNK, ONCE/SINGLE
     Route: 042
     Dates: start: 20200117, end: 20200117
  2. OXYCODONE HYDROCHLORIDE [Concomitant]
     Active Substance: OXYCODONE HYDROCHLORIDE
     Indication: Product used for unknown indication
     Dosage: UNK
     Route: 065
  3. LASIX [Concomitant]
     Active Substance: FUROSEMIDE
     Indication: Product used for unknown indication
     Dosage: UNK
     Route: 065

REACTIONS (26)
  - Immune effector cell-associated neurotoxicity syndrome [Unknown]
  - Speech disorder [Unknown]
  - Agitation [Unknown]
  - Screaming [Unknown]
  - Irritability [Unknown]
  - Influenza [Unknown]
  - Growth retardation [Unknown]
  - Tachycardia [Unknown]
  - Vision blurred [Unknown]
  - Headache [Unknown]
  - Cytokine release syndrome [Unknown]
  - Hypotension [Unknown]
  - Respiratory rate increased [Unknown]
  - Pyrexia [Unknown]
  - Oxygen saturation decreased [Unknown]
  - Heart rate increased [Unknown]
  - Pain [Unknown]
  - Serum ferritin increased [Unknown]
  - COVID-19 [Unknown]
  - Malaise [Unknown]
  - Blood electrolytes abnormal [Unknown]
  - Platelet disorder [Unknown]
  - Decreased immune responsiveness [Unknown]
  - Herpes zoster [Unknown]
  - Decreased appetite [Unknown]
  - Visual impairment [Unknown]

NARRATIVE: CASE EVENT DATE: 20200117
